FAERS Safety Report 26124906 (Version 1)
Quarter: 2025Q4

REPORT INFORMATION
  Report Type: Spontaneous
  Country: US (occurrence: US)
  Receive Date: 20251205
  Receipt Date: 20251205
  Transmission Date: 20260118
  Serious: No
  Sender: SANOFI AVENTIS
  Company Number: US-SA-2025SA361125

PATIENT
  Sex: Male
  Weight: 90.91 kg

DRUGS (12)
  1. DUPIXENT [Suspect]
     Active Substance: DUPILUMAB
     Indication: Psoriasis
     Dosage: 300 MG, QOW
     Route: 058
  2. DUPIXENT [Suspect]
     Active Substance: DUPILUMAB
     Indication: Pain
  3. DUPIXENT [Suspect]
     Active Substance: DUPILUMAB
     Indication: Urinary incontinence
  4. DUPIXENT [Suspect]
     Active Substance: DUPILUMAB
     Indication: Benign prostatic hyperplasia
  5. DUPIXENT [Suspect]
     Active Substance: DUPILUMAB
     Indication: Arthropathy
  6. DUPIXENT [Suspect]
     Active Substance: DUPILUMAB
     Indication: Rhinitis allergic
  7. DUPIXENT [Suspect]
     Active Substance: DUPILUMAB
     Indication: Arteriosclerosis
  8. DUPIXENT [Suspect]
     Active Substance: DUPILUMAB
     Indication: Depression
  9. DUPIXENT [Suspect]
     Active Substance: DUPILUMAB
     Indication: Sleep disorder
  10. DUPIXENT [Suspect]
     Active Substance: DUPILUMAB
     Indication: Anxiety
  11. FISH OIL [Concomitant]
     Active Substance: FISH OIL
  12. BAYER ASPIRIN [Concomitant]
     Active Substance: ASPIRIN

REACTIONS (1)
  - Drug ineffective for unapproved indication [Unknown]
